FAERS Safety Report 6915517-5 (Version None)
Quarter: 2010Q3

REPORT INFORMATION
  Report Type: 
  Country: None (occurrence: None)
  Receive Date: 20100804
  Receipt Date: 20100728
  Transmission Date: 20110219
  Serious: Yes (Death)
  Sender: FDA-Public Use
  Company Number: 2010070060

PATIENT
  Age: 42 Year
  Sex: Male
  Weight: 95.2554 kg

DRUGS (9)
  1. ONSOLIS [Suspect]
     Indication: CANCER PAIN
     Dosage: SEE IMAGE
     Route: 002
     Dates: start: 20100112, end: 20100121
  2. ONSOLIS [Suspect]
     Indication: CANCER PAIN
     Dosage: SEE IMAGE
     Route: 002
     Dates: start: 20100122, end: 20100203
  3. ONSOLIS [Suspect]
     Indication: CANCER PAIN
     Dosage: SEE IMAGE
     Route: 002
     Dates: start: 20100204, end: 20100518
  4. ONSOLIS [Suspect]
     Indication: CANCER PAIN
     Dosage: SEE IMAGE
     Route: 002
     Dates: start: 20100618, end: 20100625
  5. ONSOLIS [Suspect]
     Indication: CANCER PAIN
     Dosage: SEE IMAGE
     Route: 002
     Dates: start: 20100519
  6. DURAGESIC-100 [Concomitant]
  7. ACTIQ [Concomitant]
  8. DILAUDID [Concomitant]
  9. GABAPENTIN [Concomitant]

REACTIONS (2)
  - MALIGNANT NEOPLASM PROGRESSION [None]
  - PANCREATIC CARCINOMA [None]
